FAERS Safety Report 12094825 (Version 2)
Quarter: 2016Q1

REPORT INFORMATION
  Report Type: Report from Study
  Country: US (occurrence: US)
  Receive Date: 20160219
  Receipt Date: 20160309
  Transmission Date: 20160526
  Serious: Yes (Hospitalization)
  Sender: FDA-Public Use
  Company Number: US-VERTEX PHARMACEUTICALS-2016-000560

PATIENT
  Age: 16 Year
  Sex: Male

DRUGS (10)
  1. ALBUTEROL. [Concomitant]
     Active Substance: ALBUTEROL
     Dosage: 3.5 ML, BID
     Route: 055
  2. CREON [Concomitant]
     Active Substance: PANCRELIPASE AMYLASE\PANCRELIPASE LIPASE\PANCRELIPASE PROTEASE
     Dosage: 4 DF, TID WITH MEALS
     Route: 048
  3. DORNASE ALFA [Concomitant]
     Active Substance: DORNASE ALFA
     Dosage: 2.5 ML, QD
     Route: 055
  4. ALBUTEROL HFA [Concomitant]
     Active Substance: ALBUTEROL SULFATE
     Dosage: 2 PUFFS, PRN
     Route: 055
  5. VITAMIN K [Concomitant]
     Active Substance: PHYTONADIONE
     Dosage: 2 DF, BID
     Route: 048
  6. CREON [Concomitant]
     Active Substance: PANCRELIPASE AMYLASE\PANCRELIPASE LIPASE\PANCRELIPASE PROTEASE
     Dosage: 3 DF, PRN
     Route: 048
  7. ORKAMBI [Suspect]
     Active Substance: IVACAFTOR\LUMACAFTOR
     Indication: CYSTIC FIBROSIS
     Dosage: 200/125 MG, BID
     Route: 048
     Dates: start: 20151029, end: 20160208
  8. MULTIVITAMIN [Concomitant]
     Active Substance: VITAMINS
     Dosage: 1 DF, QD
     Route: 048
  9. TOBI [Concomitant]
     Active Substance: TOBRAMYCIN
     Dosage: 4 DF, CYCLE ON 28 DAYS AND OFF 28 DAYS
     Route: 055
  10. AZITHROMYCIN ANHYDROUS. [Concomitant]
     Active Substance: AZITHROMYCIN ANHYDROUS
     Dosage: 500 MG, EVERY TUESDAY, THURSDAY AND FRIDAY
     Route: 048

REACTIONS (7)
  - Vomiting [Not Recovered/Not Resolved]
  - Drug interaction [Unknown]
  - Blood bilirubin increased [Unknown]
  - Pyrexia [Unknown]
  - Liver disorder [Unknown]
  - Malaise [Not Recovered/Not Resolved]
  - Joint injury [Unknown]

NARRATIVE: CASE EVENT DATE: 20160201
